FAERS Safety Report 24059940 (Version 1)
Quarter: 2024Q3

REPORT INFORMATION
  Report Type: Spontaneous
  Country: US (occurrence: US)
  Receive Date: 20240708
  Receipt Date: 20240708
  Transmission Date: 20241016
  Serious: Yes (Hospitalization)
  Sender: SK LIFE SCIENCE
  Company Number: US-SK LIFE SCIENCE, INC.-SKPVG-2024-001423

PATIENT

DRUGS (2)
  1. XCOPRI [Suspect]
     Active Substance: CENOBAMATE
     Indication: Epilepsy
     Dosage: 200 MILLIGRAM
     Route: 048
  2. XCOPRI [Suspect]
     Active Substance: CENOBAMATE
     Dosage: 250 MILLIGRAM, QD (ONE 200 MG TABLET + ONE 50 MG TABLET)
     Route: 048

REACTIONS (5)
  - Hospitalisation [Recovered/Resolved]
  - Wrong technique in product usage process [Recovered/Resolved]
  - Product use issue [Unknown]
  - Circumstance or information capable of leading to medication error [Unknown]
  - Somnolence [Not Recovered/Not Resolved]
